FAERS Safety Report 10520469 (Version 2)
Quarter: 2015Q1

REPORT INFORMATION
  Report Type: Spontaneous
  Country: US (occurrence: US)
  Receive Date: 20141015
  Receipt Date: 20150123
  Transmission Date: 20150720
  Serious: No
  Sender: FDA-Public Use
  Company Number: US-GLAXOSMITHKLINE-US2014003573

PATIENT
  Sex: Female

DRUGS (1)
  1. FLIXOTIDE (CFC-FREE) INHALATIONAL POWDER [Suspect]
     Active Substance: FLUTICASONE PROPIONATE
     Dosage: UNK DF, UNK

REACTIONS (2)
  - Drug ineffective [Unknown]
  - Cough [Unknown]
